FAERS Safety Report 20391459 (Version 1)
Quarter: 2022Q1

REPORT INFORMATION
  Report Type: Spontaneous
  Country: CA (occurrence: CA)
  Receive Date: 20220128
  Receipt Date: 20220128
  Transmission Date: 20220423
  Serious: Yes (Other)
  Sender: FDA-Public Use
  Company Number: CA-MACLEODS PHARMACEUTICALS US LTD-MAC2022034190

PATIENT

DRUGS (14)
  1. DULOXETINE [Interacting]
     Active Substance: DULOXETINE
     Indication: Migraine prophylaxis
     Dosage: 30 MILLIGRAM, QD
     Route: 065
     Dates: start: 201708, end: 201711
  2. DULOXETINE [Interacting]
     Active Substance: DULOXETINE
     Indication: Depression
  3. DULOXETINE [Interacting]
     Active Substance: DULOXETINE
     Indication: Anxiety
  4. ESCITALOPRAM [Interacting]
     Active Substance: ESCITALOPRAM OXALATE
     Indication: Anxiety
     Dosage: 7.5 MILLIGRAM, QD
     Route: 048
  5. ESCITALOPRAM [Interacting]
     Active Substance: ESCITALOPRAM OXALATE
     Indication: Depression
     Dosage: 5 MILLIGRAM, QD
     Route: 048
     Dates: start: 201810
  6. SUMATRIPTAN [Interacting]
     Active Substance: SUMATRIPTAN
     Indication: Migraine
     Dosage: 100 MILLIGRAM, QD (AS NEEDED, DAILY)
     Route: 048
     Dates: start: 201701
  7. SUMATRIPTAN [Interacting]
     Active Substance: SUMATRIPTAN
     Indication: Migraine prophylaxis
  8. ETHINYL ESTRADIOL\LEVONORGESTREL [Concomitant]
     Active Substance: ETHINYL ESTRADIOL\LEVONORGESTREL
     Indication: Hormonal contraception
     Dosage: UNK, QD
     Route: 048
  9. KETOROLAC [Concomitant]
     Active Substance: KETOROLAC TROMETHAMINE
     Indication: Migraine
     Dosage: 10 MILLIGRAM, QD
     Route: 048
  10. LORATADINE\PSEUDOEPHEDRINE SULFATE [Concomitant]
     Active Substance: LORATADINE\PSEUDOEPHEDRINE SULFATE
     Indication: Rhinitis allergic
     Dosage: UNK, PRN, DAILY AS NEEDED, USED ONCE OR TWICE A WEEK
     Route: 048
  11. PROMETHAZINE [Concomitant]
     Active Substance: PROMETHAZINE HYDROCHLORIDE
     Indication: Migraine
     Dosage: 25 MILLIGRAM, QD
     Route: 048
  12. VITAMIN D [Concomitant]
     Active Substance: VITAMIN D NOS
     Indication: Nutritional supplementation
     Dosage: 2000 INTERNATIONAL UNIT, QD
     Route: 048
  13. VITAMIN C [Concomitant]
     Active Substance: ASCORBIC ACID
     Indication: Nutritional supplementation
     Dosage: 125 MILLIGRAM, BID( EVERY 12 HRS)
     Route: 048
  14. ZOLPIDEM [Concomitant]
     Active Substance: ZOLPIDEM TARTRATE
     Indication: Insomnia
     Dosage: 5 MILLIGRAM, PRN, AS NEEDED, AT BEDTIME
     Route: 048

REACTIONS (13)
  - Depressive symptom [Unknown]
  - Agitation [Unknown]
  - Hyperhidrosis [Unknown]
  - Depressed mood [Recovered/Resolved]
  - Body temperature increased [Recovered/Resolved]
  - Drug-disease interaction [Recovering/Resolving]
  - Drug ineffective [Unknown]
  - Drug interaction [Unknown]
  - Drug interaction [Unknown]
  - Condition aggravated [Unknown]
  - Depressive symptom [Unknown]
  - Depressed mood [Unknown]
  - Drug-disease interaction [Unknown]

NARRATIVE: CASE EVENT DATE: 20170101
